FAERS Safety Report 4434405-X (Version None)
Quarter: 2004Q3

REPORT INFORMATION
  Report Type: 
  Country: None (occurrence: None)
  Receive Date: 20040825
  Receipt Date: 20040812
  Transmission Date: 20050211
  Serious: Yes (Other)
  Sender: FDA-Public Use
  Company Number: US-JNJFOC-20031204954

PATIENT
  Age: 43 Year
  Sex: Female
  Weight: 73.4827 kg

DRUGS (6)
  1. REMICADE [Suspect]
     Indication: CROHN'S DISEASE
     Dosage: 1 IN 8 WEEK, INTRAVENOUS
     Route: 042
     Dates: start: 20000101
  2. REMICADE [Suspect]
     Dosage: 350 MG, 1 IN 8 WEEK, INTRAVENOUS
     Route: 042
     Dates: start: 20030224
  3. REMICADE [Suspect]
     Dosage: 350 MG, 1 IN 8 WEEK, INTRAVENOUS
     Route: 042
     Dates: start: 20030428
  4. REMICADE [Suspect]
     Dosage: 350 MG, 1 IN 8 WEEK, INTRAVENOUS
     Route: 042
     Dates: start: 20030623
  5. REMICADE [Suspect]
     Dosage: 350 MG , 1 IN 8 WEEK, INTRAVENOUS
     Route: 042
     Dates: start: 20030825
  6. MERCAPTOPURINE [Concomitant]

REACTIONS (1)
  - MALIGNANT MELANOMA [None]
